FAERS Safety Report 9778789 (Version 1)
Quarter: 2013Q4

REPORT INFORMATION
  Report Type: Spontaneous
  Country: US (occurrence: None)
  Receive Date: 20131220
  Receipt Date: 20131220
  Transmission Date: 20140711
  Serious: Yes (Life-Threatening, Hospitalization, Disabling)
  Sender: FDA-Public Use
  Company Number: None

PATIENT
  Age: 63 Year
  Sex: Male
  Weight: 126 kg

DRUGS (11)
  1. APIXABAN [Suspect]
     Indication: ATRIAL FIBRILLATION
     Dosage: SEVERAL WEEKS
     Route: 048
  2. ATENOLOL [Concomitant]
  3. ATORVASTATIN [Concomitant]
  4. FELODIPINE [Concomitant]
  5. HCTZ [Concomitant]
  6. LORTAB [Concomitant]
  7. LORAZEPAM [Concomitant]
  8. METAXALONE [Concomitant]
  9. METFORMIN [Concomitant]
  10. PREGABALIN [Concomitant]
  11. QUINAPRIL [Concomitant]

REACTIONS (1)
  - Non-small cell lung cancer [None]
